FAERS Safety Report 6208153-X (Version None)
Quarter: 2009Q2

REPORT INFORMATION
  Report Type: 
  Country: None (occurrence: None)
  Receive Date: 20090529
  Receipt Date: 20090428
  Transmission Date: 20091009
  Serious: No
  Sender: FDA-Public Use
  Company Number: US-BAYER-200841253NA

PATIENT
  Age: 42 Year
  Sex: Female

DRUGS (1)
  1. MIRENA [Suspect]
     Indication: CONTRACEPTION
     Dosage: CONTINUOUS
     Route: 015
     Dates: start: 20080903, end: 20081015

REACTIONS (5)
  - ABDOMINAL PAIN [None]
  - FEELING ABNORMAL [None]
  - MENTAL DISORDER [None]
  - VAGINAL HAEMORRHAGE [None]
  - WEIGHT INCREASED [None]
